FAERS Safety Report 17912950 (Version 1)
Quarter: 2020Q2

REPORT INFORMATION
  Report Type: Spontaneous
  Country: US (occurrence: US)
  Receive Date: 20200618
  Receipt Date: 20200618
  Transmission Date: 20200714
  Serious: Yes (Death)
  Sender: FDA-Public Use
  Company Number: US-TEVA-2020-US-1788267

PATIENT
  Sex: Female

DRUGS (9)
  1. ESTRADIOL. [Suspect]
     Active Substance: ESTRADIOL
     Route: 065
  2. FLUOXETINE [Suspect]
     Active Substance: FLUOXETINE HYDROCHLORIDE
     Route: 065
  3. QUETIAPINE. [Suspect]
     Active Substance: QUETIAPINE
     Route: 065
  4. AMITRIPTYLINE [Suspect]
     Active Substance: AMITRIPTYLINE
     Route: 065
  5. PREGABALIN. [Suspect]
     Active Substance: PREGABALIN
     Route: 065
  6. BUPRENORPHINE. [Suspect]
     Active Substance: BUPRENORPHINE
     Route: 065
  7. PROMETHAZINE [Suspect]
     Active Substance: PROMETHAZINE HYDROCHLORIDE
     Route: 065
  8. PROPRANOLOL [Suspect]
     Active Substance: PROPRANOLOL HYDROCHLORIDE
     Route: 065
  9. TIZANIDINE. [Suspect]
     Active Substance: TIZANIDINE
     Route: 065

REACTIONS (2)
  - Drug abuse [Fatal]
  - Intentional overdose [Fatal]
